FAERS Safety Report 7105405-6 (Version None)
Quarter: 2010Q4

REPORT INFORMATION
  Report Type: 
  Country: None (occurrence: None)
  Receive Date: 20101116
  Receipt Date: 20101108
  Transmission Date: 20110411
  Serious: Yes (Death, Hospitalization)
  Sender: FDA-Public Use
  Company Number: CN-ELI_LILLY_AND_COMPANY-CN201010004109

PATIENT
  Sex: Female
  Weight: 52 kg

DRUGS (10)
  1. GEMCITABINE HCL [Suspect]
     Indication: NON-SMALL CELL LUNG CANCER
     Dosage: 1250 MG/M2, DAYS 1 AND 8 EVERY 21 DAYS
     Route: 042
     Dates: start: 20100926
  2. CISPLATIN [Suspect]
     Indication: NON-SMALL CELL LUNG CANCER
     Dosage: 75 MG/M2, DAY 1 EVERY 21 DAYS
     Route: 042
     Dates: start: 20100926
  3. FOLIC ACID [Concomitant]
     Indication: PROPHYLAXIS
     Dosage: UNK, UNK
     Dates: start: 20100914
  4. DOXOFYLLINE [Concomitant]
     Dosage: UNK, UNK
     Dates: start: 20100925
  5. GLUCOSE [Concomitant]
     Dosage: UNK, UNK
     Dates: start: 20100925
  6. SODIUM CHLORIDE [Concomitant]
     Dosage: 0.9 %, UNK
     Dates: start: 20100928
  7. AMBROXOL [Concomitant]
     Dosage: UNK, UNK
     Dates: start: 20100928
  8. CODEINE PHOSPHATE [Concomitant]
     Dosage: UNK, UNK
     Dates: start: 20101012
  9. CEFAZOLIN SODIUM [Concomitant]
     Dosage: UNK, UNK
     Dates: start: 20101016
  10. DIPROPHYLLINE [Concomitant]
     Dosage: UNK, UNK
     Dates: start: 20101015

REACTIONS (1)
  - PULMONARY EMBOLISM [None]
